FAERS Safety Report 4799003-7 (Version None)
Quarter: 2005Q4

REPORT INFORMATION
  Report Type: 
  Country: None (occurrence: None)
  Receive Date: 20051013
  Receipt Date: 20050930
  Transmission Date: 20060501
  Serious: Yes (Life-Threatening)
  Sender: FDA-Public Use
  Company Number: SGB1-2005-00435

PATIENT
  Age: 52 Year
  Sex: Female

DRUGS (5)
  1. ANAGRELIDE HCL [Suspect]
     Indication: THROMBOCYTHAEMIA
     Dosage: 4 DF PER DAY, ORAL
     Route: 048
     Dates: start: 20010415
  2. FLUOXETINE HCL [Concomitant]
  3. IXPRIM [Concomitant]
  4. GINKOR [Concomitant]
  5. WARFARIN SODIUM [Concomitant]

REACTIONS (4)
  - ANGINA PECTORIS [None]
  - CORONARY ARTERY STENOSIS [None]
  - DYSPNOEA EXERTIONAL [None]
  - ELECTROCARDIOGRAM ST SEGMENT DEPRESSION [None]
